FAERS Safety Report 17298291 (Version 1)
Quarter: 2020Q1

REPORT INFORMATION
  Report Type: Spontaneous
  Country: US (occurrence: US)
  Receive Date: 20200122
  Receipt Date: 20200122
  Transmission Date: 20200409
  Serious: Yes (Other)
  Sender: FDA-Public Use
  Company Number: NVSC2020US014603

PATIENT
  Age: 11 Year
  Sex: Male

DRUGS (9)
  1. CARBOPLATIN. [Suspect]
     Active Substance: CARBOPLATIN
     Indication: OPTIC GLIOMA
     Dosage: UNK
     Route: 062
  2. LOMUSTINE. [Suspect]
     Active Substance: LOMUSTINE
     Indication: OPTIC GLIOMA
     Dosage: UNK
     Route: 062
  3. EVEROLIMUS. [Suspect]
     Active Substance: EVEROLIMUS
     Indication: OPTIC GLIOMA
     Dosage: UNK
     Route: 062
  4. ACTINOMYCIN D [Suspect]
     Active Substance: DACTINOMYCIN
     Indication: OPTIC GLIOMA
     Dosage: UNK
     Route: 062
  5. THIOGUANINE [Suspect]
     Active Substance: THIOGUANINE
     Indication: OPTIC GLIOMA
     Dosage: UNK
     Route: 062
  6. TRAMETINIB [Suspect]
     Active Substance: TRAMETINIB
     Indication: OPTIC GLIOMA
     Dosage: UNK
     Route: 062
  7. VINCRISTINE [Suspect]
     Active Substance: VINCRISTINE
     Indication: OPTIC GLIOMA
     Dosage: UNK
     Route: 062
  8. BEVACIZUMAB. [Suspect]
     Active Substance: BEVACIZUMAB
     Indication: OPTIC GLIOMA
     Dosage: UNK
     Route: 062
  9. PROCARBAZINE [Suspect]
     Active Substance: PROCARBAZINE
     Indication: OPTIC GLIOMA
     Dosage: UNK
     Route: 062

REACTIONS (3)
  - Malignant neoplasm progression [Unknown]
  - Blindness [Unknown]
  - Optic glioma [Unknown]
